FAERS Safety Report 5707217-4 (Version None)
Quarter: 2008Q2

REPORT INFORMATION
  Report Type: 
  Country: None (occurrence: None)
  Receive Date: 20080416
  Receipt Date: 20080409
  Transmission Date: 20081010
  Serious: Yes (Other)
  Sender: FDA-Public Use
  Company Number: US-MERCK-0705USA02822

PATIENT
  Age: 53 Year
  Sex: Female
  Weight: 102 kg

DRUGS (4)
  1. FOSAMAX [Suspect]
     Indication: OSTEOPOROSIS
     Route: 048
     Dates: start: 20000701, end: 20030201
  2. HORMONES (UNSPECIFIED) [Concomitant]
     Indication: HORMONE THERAPY
     Route: 065
     Dates: start: 19980101, end: 20030101
  3. [THERAPY UNSPECIFIED] [Concomitant]
     Indication: DIABETES MELLITUS
     Route: 065
     Dates: start: 19980101
  4. [THERAPY UNSPECIFIED] [Concomitant]
     Indication: HYPERTENSION
     Route: 065
     Dates: start: 19980101

REACTIONS (15)
  - BACK PAIN [None]
  - DENTAL CARIES [None]
  - DIABETES MELLITUS INADEQUATE CONTROL [None]
  - DRUG INTOLERANCE [None]
  - GASTROINTESTINAL DISORDER [None]
  - GASTROOESOPHAGEAL REFLUX DISEASE [None]
  - HYPERTENSION [None]
  - MENOPAUSAL SYMPTOMS [None]
  - OEDEMA MOUTH [None]
  - ORAL PAIN [None]
  - OSTEOARTHRITIS [None]
  - OSTEONECROSIS [None]
  - PAIN IN JAW [None]
  - TOOTH FRACTURE [None]
  - TOOTH LOSS [None]
